FAERS Safety Report 15506600 (Version 2)
Quarter: 2018Q4

REPORT INFORMATION
  Report Type: Spontaneous
  Country: CH (occurrence: CH)
  Receive Date: 20181016
  Receipt Date: 20181107
  Transmission Date: 20190205
  Serious: Yes (Other)
  Sender: FDA-Public Use
  Company Number: PHHY2018CH008103

PATIENT
  Age: 23 Year
  Sex: Male

DRUGS (2)
  1. MEKINIST [Suspect]
     Active Substance: TRAMETINIB DIMETHYL SULFOXIDE
     Indication: GANGLIOGLIOMA
     Dosage: 2 MG, QD
     Route: 065
     Dates: start: 20180305
  2. MEKINIST [Suspect]
     Active Substance: TRAMETINIB DIMETHYL SULFOXIDE
     Indication: SYRINGOMYELIA

REACTIONS (4)
  - Ganglioglioma [Unknown]
  - Malignant neoplasm progression [Unknown]
  - Syringomyelia [Unknown]
  - Off label use [Unknown]
